FAERS Safety Report 4718297-7 (Version None)
Quarter: 2005Q3

REPORT INFORMATION
  Report Type: 
  Country: None (occurrence: None)
  Receive Date: 20050718
  Receipt Date: 20050718
  Transmission Date: 20060218
  Serious: Yes (Hospitalization, Disabling, Other)
  Sender: FDA-Public Use
  Company Number: None

PATIENT
  Age: 28 Year
  Sex: Male
  Weight: 80 kg

DRUGS (1)
  1. LARIAM [Suspect]
     Dosage: 1       WEEKLY  ORAL
     Route: 048
     Dates: start: 19891010, end: 19991017

REACTIONS (7)
  - ANXIETY [None]
  - BRAIN DAMAGE [None]
  - DEPRESSION [None]
  - MONOPLEGIA [None]
  - MUSCLE TWITCHING [None]
  - SENSORY LOSS [None]
  - TREMOR [None]
